FAERS Safety Report 17933542 (Version 1)
Quarter: 2020Q2

REPORT INFORMATION
  Report Type: Spontaneous
  Country: AR (occurrence: AR)
  Receive Date: 20200623
  Receipt Date: 20200623
  Transmission Date: 20200714
  Serious: Yes (Hospitalization)
  Sender: FDA-Public Use
  Company Number: AR-PFIZER INC-2020239269

PATIENT
  Age: 83 Year
  Sex: Female

DRUGS (1)
  1. SUTENT [Suspect]
     Active Substance: SUNITINIB MALATE
     Indication: METASTATIC RENAL CELL CARCINOMA
     Dosage: 50 MG, CYCLIC (SCHEME 4X2 REST)
     Dates: start: 20181017

REACTIONS (5)
  - Diarrhoea [Unknown]
  - Pain [Unknown]
  - Condition aggravated [Unknown]
  - Hypokinesia [Unknown]
  - Vomiting [Unknown]

NARRATIVE: CASE EVENT DATE: 20200612
